FAERS Safety Report 10381074 (Version 1)
Quarter: 2014Q1

REPORT INFORMATION
  Report Type: Spontaneous
  Country: US (occurrence: None)
  Receive Date: 20140306
  Receipt Date: 20140306
  Transmission Date: 20141002
  Serious: Yes (Hospitalization, Other)
  Sender: FDA-Public Use
  Company Number: 163-21880-13030175

PATIENT
  Age: 50 Year
  Sex: Male
  Weight: 43.09 kg

DRUGS (4)
  1. REVLIMID (LENALIDOMIDE) (25 MILLIGRAM, CAPSULES) [Suspect]
     Indication: PLASMA CELL MYELOMA
     Dosage: 01/30/2013-TEMPORARILY INTERRUPTED
     Route: 048
     Dates: start: 20130130
  2. VELCADE (BORTEZOMIB) [Concomitant]
  3. DECADRON (DEXAMETHASONE) [Concomitant]
  4. ZOMETA (ZOLEDRONIC [Concomitant]

REACTIONS (2)
  - Pneumonia [None]
  - Plasma cell myeloma [None]
